FAERS Safety Report 8798787 (Version 7)
Quarter: 2017Q2

REPORT INFORMATION
  Report Type: Spontaneous
  Country: US (occurrence: US)
  Receive Date: 20120920
  Receipt Date: 20170516
  Transmission Date: 20170830
  Serious: Yes (Hospitalization, Other)
  Sender: FDA-Public Use
  Company Number: US-009507513-1209USA003598

PATIENT
  Sex: Female

DRUGS (3)
  1. FOSAMAX [Suspect]
     Active Substance: ALENDRONATE SODIUM
     Indication: OSTEOPOROSIS
     Dosage: 70 MG, QW
     Route: 048
     Dates: start: 2000, end: 200712
  2. ALENDRONATE SODIUM. [Suspect]
     Active Substance: ALENDRONATE SODIUM
     Indication: OSTEOPOROSIS
     Dosage: 70 MG, UNK
     Route: 048
     Dates: start: 20100112, end: 201012
  3. FOSAMAX PLUS D [Suspect]
     Active Substance: ALENDRONATE SODIUM\CHOLECALCIFEROL
     Indication: OSTEOPOROSIS
     Dosage: 70 MG, QW
     Route: 048
     Dates: start: 20071220, end: 20091212

REACTIONS (21)
  - Medical device removal [Unknown]
  - Fall [Unknown]
  - Spinal osteoarthritis [Unknown]
  - Upper gastrointestinal haemorrhage [Unknown]
  - Streptococcus test positive [Unknown]
  - Klebsiella test positive [Unknown]
  - Urinary tract infection [Unknown]
  - Low turnover osteopathy [Unknown]
  - Hypertension [Unknown]
  - Basal cell carcinoma [Unknown]
  - Femur fracture [Unknown]
  - Gastric mucosal lesion [Unknown]
  - Blood cholesterol increased [Unknown]
  - Intramedullary rod insertion [Unknown]
  - Pyrexia [Unknown]
  - Adverse event [Unknown]
  - Fracture [Unknown]
  - Hip arthroplasty [Unknown]
  - Hip arthroplasty [Unknown]
  - Osteoarthritis [Unknown]
  - Device failure [Unknown]

NARRATIVE: CASE EVENT DATE: 2003
